FAERS Safety Report 4718440-X (Version None)
Quarter: 2005Q3

REPORT INFORMATION
  Report Type: 
  Country: None (occurrence: None)
  Receive Date: 20050719
  Receipt Date: 20050222
  Transmission Date: 20060218
  Serious: Yes (Other)
  Sender: FDA-Public Use
  Company Number: 2005037317

PATIENT
  Sex: Female

DRUGS (2)
  1. CELEBREX [Suspect]
     Indication: PAIN
  2. PROPACET 100 [Concomitant]

REACTIONS (3)
  - OSTEOARTHRITIS [None]
  - RENAL PAIN [None]
  - SPONDYLITIS [None]
